FAERS Safety Report 9144737 (Version 3)
Quarter: 2014Q1

REPORT INFORMATION
  Report Type: Spontaneous
  Country: US (occurrence: US)
  Receive Date: 20130306
  Receipt Date: 20140110
  Transmission Date: 20141002
  Serious: No
  Sender: FDA-Public Use
  Company Number: US-009507513-1303USA001458

PATIENT
  Age: 63 Year
  Sex: Female
  Weight: 123.36 kg

DRUGS (10)
  1. PEG-INTRON [Suspect]
     Indication: HEPATITIS C
     Dosage: 0.5 ML(CC), QW, REDIPEN
     Route: 058
     Dates: start: 20130201
  2. REBETOL [Suspect]
     Indication: HEPATITIS C
     Dosage: 1400 MG, BID
     Route: 048
     Dates: start: 20130201
  3. TELAPREVIR [Suspect]
     Indication: HEPATITIS C
     Dosage: UNK
     Dates: start: 20130201, end: 20130428
  4. HYZAAR [Concomitant]
     Dosage: STRENGTH: 50-12.5MG; 1 TABLET DAILY
     Route: 048
  5. LASIX (FUROSEMIDE) [Concomitant]
     Dosage: 1 TABLET DAILY
     Route: 048
  6. SPIRONOLACTONE [Concomitant]
     Dosage: 1 TABLET DAILY
     Route: 048
  7. METOPROLOL [Concomitant]
     Dosage: 1 TABLET DAILY
     Route: 048
  8. CIPRO (CIPROFLOXACIN) [Concomitant]
     Dosage: UNK, BID
  9. HYDROXYZINE [Concomitant]
     Dosage: 2 DF, QPM(NIGHTLY)
     Route: 048
  10. NUCYNTA [Concomitant]
     Dosage: 1 TABLET, THREE DLY PRN
     Route: 048

REACTIONS (17)
  - Scab [Unknown]
  - Back pain [Unknown]
  - Weight decreased [Unknown]
  - Rash pruritic [Unknown]
  - Skin hypopigmentation [Unknown]
  - Hyperhidrosis [Unknown]
  - Rash macular [Unknown]
  - Pruritus generalised [Unknown]
  - Dizziness [Unknown]
  - Fatigue [Unknown]
  - Blood pressure decreased [Unknown]
  - Rash pruritic [Unknown]
  - White blood cell count decreased [Unknown]
  - Hepatic enzyme increased [Unknown]
  - Injection site scab [Unknown]
  - Injection site swelling [Unknown]
  - Injection site pain [Unknown]
